FAERS Safety Report 9438959 (Version 1)
Quarter: 2013Q3

REPORT INFORMATION
  Report Type: Spontaneous
  Country: US (occurrence: US)
  Receive Date: 20130802
  Receipt Date: 20130802
  Transmission Date: 20140515
  Serious: Yes (Other)
  Sender: FDA-Public Use
  Company Number: US-GILEAD-2013-0080416

PATIENT
  Sex: Male

DRUGS (1)
  1. ATRIPLA [Suspect]
     Indication: HIV INFECTION
     Dosage: UNK UNKNOWN, UNK

REACTIONS (3)
  - Viral test positive [Recovered/Resolved]
  - Glaucoma [Unknown]
  - Drug hypersensitivity [Unknown]
